FAERS Safety Report 13412726 (Version 3)
Quarter: 2023Q2

REPORT INFORMATION
  Report Type: Spontaneous
  Country: US (occurrence: US)
  Receive Date: 20170406
  Receipt Date: 20230628
  Transmission Date: 20230722
  Serious: Yes (Other)
  Sender: FDA-Public Use
  Company Number: US-JNJFOC-20170307904

PATIENT
  Sex: Male

DRUGS (6)
  1. RISPERDAL [Suspect]
     Active Substance: RISPERIDONE
     Indication: Attention deficit hyperactivity disorder
     Route: 048
     Dates: start: 20000829, end: 20010515
  2. RISPERDAL [Suspect]
     Active Substance: RISPERIDONE
     Indication: Oppositional defiant disorder
     Route: 048
     Dates: end: 20010621
  3. RISPERDAL [Suspect]
     Active Substance: RISPERIDONE
     Indication: Intermittent explosive disorder
     Route: 048
     Dates: start: 20011011, end: 20030213
  4. RISPERDAL [Suspect]
     Active Substance: RISPERIDONE
     Dosage: 1/2 IN MORNING AND 1 AT BED TIME
     Route: 048
     Dates: start: 20030408
  5. RISPERDAL [Suspect]
     Active Substance: RISPERIDONE
     Dosage: 1/2 IN MORNING AND 1 AT BED TIME
     Route: 048
     Dates: start: 20030610, end: 20040106
  6. RISPERDAL [Suspect]
     Active Substance: RISPERIDONE
     Route: 048
     Dates: end: 20040203

REACTIONS (2)
  - Gynaecomastia [Unknown]
  - Emotional disorder [Unknown]
